FAERS Safety Report 13935599 (Version 2)
Quarter: 2017Q3

REPORT INFORMATION
  Report Type: Report from Study
  Country: US (occurrence: US)
  Receive Date: 20170905
  Receipt Date: 20170905
  Transmission Date: 20171127
  Serious: No
  Sender: FDA-Public Use
  Company Number: PHEH2017US027984

PATIENT

DRUGS (2)
  1. CICLOSPORIN [Suspect]
     Active Substance: CYCLOSPORINE
     Indication: PRODUCT USED FOR UNKNOWN INDICATION
     Route: 065
  2. CICLOSPORIN [Suspect]
     Active Substance: CYCLOSPORINE
     Dosage: DOSE DECREASED
     Route: 065

REACTIONS (2)
  - Blood magnesium decreased [Recovering/Resolving]
  - Nausea [Recovering/Resolving]
